FAERS Safety Report 23045310 (Version 10)
Quarter: 2024Q4

REPORT INFORMATION
  Report Type: Spontaneous
  Country: US (occurrence: US)
  Receive Date: 20231009
  Receipt Date: 20241104
  Transmission Date: 20250114
  Serious: No
  Sender: BRISTOL-MYERS SQUIBB COMPANY
  Company Number: US-BRISTOL-MYERS SQUIBB COMPANY-2023-142478

PATIENT
  Age: 77 Year
  Sex: Female
  Weight: 54.43 kg

DRUGS (2)
  1. POMALYST [Suspect]
     Active Substance: POMALIDOMIDE
     Indication: Plasma cell myeloma
     Route: 048
  2. POMALYST [Suspect]
     Active Substance: POMALIDOMIDE
     Route: 048

REACTIONS (12)
  - Ocular hyperaemia [Unknown]
  - Rash [Recovering/Resolving]
  - Feeling abnormal [Unknown]
  - Nasopharyngitis [Unknown]
  - Nasal congestion [Unknown]
  - Respiratory tract congestion [Unknown]
  - Alopecia [Unknown]
  - Tremor [Unknown]
  - Brain fog [Unknown]
  - Dizziness [Unknown]
  - Oropharyngeal pain [Recovered/Resolved]
  - Glossodynia [Unknown]
